FAERS Safety Report 10261161 (Version 1)
Quarter: 2014Q2

REPORT INFORMATION
  Report Type: Report from Study
  Country: US (occurrence: US)
  Receive Date: 20140626
  Receipt Date: 20140626
  Transmission Date: 20141212
  Serious: Yes (Hospitalization)
  Sender: FDA-Public Use
  Company Number: PHEH2014US012710

PATIENT
  Sex: Male

DRUGS (3)
  1. CLOZARIL [Suspect]
     Dosage: UNK
  2. CLOZARIL [Suspect]
     Dosage: 75 MG, UNK
  3. CLOZAPINE [Suspect]
     Dosage: UNK

REACTIONS (3)
  - Vertebral osteophyte [Unknown]
  - Muscular weakness [Unknown]
  - Arthropathy [Unknown]
